FAERS Safety Report 19973150 (Version 1)
Quarter: 2021Q4

REPORT INFORMATION
  Report Type: Spontaneous
  Country: US (occurrence: US)
  Receive Date: 20211020
  Receipt Date: 20211020
  Transmission Date: 20220303
  Serious: Yes (unspecified)
  Sender: FDA-Public Use
  Company Number: None

PATIENT
  Age: 63 Year
  Sex: Female
  Weight: 74.8 kg

DRUGS (2)
  1. DOCETAXEL [Suspect]
     Active Substance: DOCETAXEL
     Indication: Breast cancer
     Dosage: ?          OTHER FREQUENCY:ONE TIME INFUSION;
     Route: 041
     Dates: start: 20211019, end: 20211019
  2. Solu-Cortef 100 mg [Concomitant]
     Dates: start: 20211019, end: 20211019

REACTIONS (4)
  - Back pain [None]
  - Feeling abnormal [None]
  - Flushing [None]
  - Infusion related reaction [None]

NARRATIVE: CASE EVENT DATE: 20211019
